FAERS Safety Report 17225373 (Version 1)
Quarter: 2020Q1

REPORT INFORMATION
  Report Type: Spontaneous
  Country: US (occurrence: US)
  Receive Date: 20200102
  Receipt Date: 20200102
  Transmission Date: 20200409
  Serious: No
  Sender: FDA-Public Use
  Company Number: US-ELI_LILLY_AND_COMPANY-US201912007300

PATIENT
  Age: 82 Year
  Sex: Female

DRUGS (4)
  1. HUMULIN N [Suspect]
     Active Substance: INSULIN HUMAN
     Indication: DIABETES MELLITUS
     Dosage: 90 DOSAGE FORM, EACH MORNING
     Route: 058
     Dates: start: 20191129
  2. HUMULIN N [Suspect]
     Active Substance: INSULIN HUMAN
     Dosage: 80 DOSAGE FORM, EACH EVENING
     Route: 058
     Dates: start: 20191129
  3. HUMULIN N [Suspect]
     Active Substance: INSULIN HUMAN
     Dosage: 80 DOSAGE FORM, EACH EVENING
     Route: 058
     Dates: start: 20191129
  4. HUMULIN N [Suspect]
     Active Substance: INSULIN HUMAN
     Dosage: 90 DOSAGE FORM, EACH MORNING
     Route: 058
     Dates: start: 20191129

REACTIONS (1)
  - Blood glucose increased [Unknown]
